FAERS Safety Report 8952494 (Version 1)
Quarter: 2012Q4

REPORT INFORMATION
  Report Type: 
  Country: ES (occurrence: ES)
  Receive Date: 20121205
  Receipt Date: 20121205
  Transmission Date: 20130627
  Serious: Yes (Other)
  Sender: FDA-Public Use
  Company Number: PHHY2012ES111241

PATIENT
  Age: 21 Year
  Sex: Male

DRUGS (1)
  1. EXJADE [Suspect]
     Indication: IRON OVERLOAD
     Dosage: 1000 mg, UNK
     Route: 048
     Dates: start: 201012

REACTIONS (2)
  - Bone marrow failure [Unknown]
  - Exposure via father [Unknown]
